FAERS Safety Report 25769367 (Version 1)
Quarter: 2025Q3

REPORT INFORMATION
  Report Type: Spontaneous
  Country: US (occurrence: US)
  Receive Date: 20250906
  Receipt Date: 20250906
  Transmission Date: 20251020
  Serious: Yes (Life-Threatening, Hospitalization, Other)
  Sender: UNITED THERAPEUTICS
  Company Number: US-UNITED THERAPEUTICS-UNT-2025-030290

PATIENT
  Age: 60 Year
  Sex: Female

DRUGS (3)
  1. REMODULIN [Suspect]
     Active Substance: TREPROSTINIL
     Indication: Pulmonary arterial hypertension
  2. TADALAFIL [Concomitant]
     Active Substance: TADALAFIL
     Indication: Pulmonary arterial hypertension
  3. MACITENTAN [Concomitant]
     Active Substance: MACITENTAN
     Indication: Pulmonary arterial hypertension

REACTIONS (10)
  - Pulmonary hypertensive crisis [Recovered/Resolved]
  - Right ventricular failure [Recovered/Resolved]
  - Hypoxia [Recovered/Resolved]
  - Mental status changes [Recovered/Resolved]
  - Hypercapnia [Recovered/Resolved]
  - Multiple injuries [Unknown]
  - Spinal column injury [Recovered/Resolved with Sequelae]
  - Anaemic hypoxia [Recovered/Resolved]
  - Thrombocytopenia [Recovered/Resolved]
  - Coagulopathy [Recovered/Resolved]
